FAERS Safety Report 10224115 (Version 3)
Quarter: 2014Q3

REPORT INFORMATION
  Report Type: Report from Study
  Country: JP (occurrence: None)
  Receive Date: 20140605
  Receipt Date: 20140714
  Transmission Date: 20150326
  Serious: Yes (Death)
  Sender: FDA-Public Use
  Company Number: JP-015904

PATIENT
  Age: 70 Year
  Sex: Male
  Weight: 53 kg

DRUGS (8)
  1. ZOMETA [Concomitant]
     Active Substance: ZOLEDRONIC ACID
  2. GASTER [Concomitant]
     Active Substance: FAMOTIDINE
  3. GONAX [Suspect]
     Active Substance: DEGARELIX
     Indication: PROSTATE CANCER
     Dosage: (240 MG 1X SUBCUTANEOUS)?
     Route: 058
     Dates: start: 20131212, end: 20131212
  4. CASODEX [Concomitant]
     Active Substance: BICALUTAMIDE
  5. ALOSITOL [Concomitant]
     Active Substance: ALLOPURINOL
  6. WARFARIN [Suspect]
     Active Substance: WARFARIN
     Indication: PRODUCT USED FOR UNKNOWN INDICATION
     Route: 048
     Dates: end: 20140501
  7. MEVALOTIN [Concomitant]
     Active Substance: PRAVASTATIN SODIUM
  8. LANIRAPID [Concomitant]
     Active Substance: METILDIGOXIN

REACTIONS (1)
  - Cerebral haemorrhage [None]

NARRATIVE: CASE EVENT DATE: 20140501
